FAERS Safety Report 8091220-6 (Version None)
Quarter: 2012Q1

REPORT INFORMATION
  Report Type: 
  Country: None (occurrence: None)
  Receive Date: 20120129
  Receipt Date: 20111028
  Transmission Date: 20120608
  Serious: No
  Sender: FDA-Public Use
  Company Number: US-ABBOTT-11P-163-0868094-00

PATIENT
  Sex: Female

DRUGS (2)
  1. NORETHINDRONE ACETATE AND ETHINYL ESTRADIOL AND FERROUS FUMARATE [Concomitant]
     Indication: CONTRACEPTION
     Dosage: PILL
  2. HUMIRA [Suspect]
     Indication: RHEUMATOID ARTHRITIS
     Route: 058
     Dates: start: 20110901

REACTIONS (4)
  - FUNGAL INFECTION [None]
  - INJECTION SITE DISCOMFORT [None]
  - CYSTITIS [None]
  - FEELING ABNORMAL [None]
